FAERS Safety Report 18110468 (Version 3)
Quarter: 2020Q4

REPORT INFORMATION
  Report Type: Report from Study
  Country: US (occurrence: US)
  Receive Date: 20200804
  Receipt Date: 20201103
  Transmission Date: 20210113
  Serious: Yes (Other)
  Sender: FDA-Public Use
  Company Number: NVSC2020US212682

PATIENT
  Age: 79 Year
  Sex: Female

DRUGS (2)
  1. ENTRESTO [Suspect]
     Active Substance: SACUBITRIL\VALSARTAN
     Indication: CARDIAC FAILURE
  2. ENTRESTO [Suspect]
     Active Substance: SACUBITRIL\VALSARTAN
     Indication: CARDIAC FAILURE
     Dosage: 49.51 MG, BID
     Route: 048
     Dates: start: 20200327

REACTIONS (10)
  - Fluid retention [Unknown]
  - Dehydration [Unknown]
  - Dizziness [Unknown]
  - Hypotension [Unknown]
  - Ejection fraction decreased [Unknown]
  - Heart rate increased [Unknown]
  - Peripheral swelling [Unknown]
  - Headache [Unknown]
  - Cardiac valve disease [Unknown]
  - Drug dependence [Unknown]

NARRATIVE: CASE EVENT DATE: 20200811
